FAERS Safety Report 7808966-4 (Version None)
Quarter: 2011Q4

REPORT INFORMATION
  Report Type: 
  Country: None (occurrence: None)
  Receive Date: 20111012
  Receipt Date: 20110107
  Transmission Date: 20120403
  Serious: Yes (Other)
  Sender: FDA-Public Use
  Company Number: GB-UCBSA-025028

PATIENT
  Age: 45 Year
  Sex: Female
  Weight: 50 kg

DRUGS (10)
  1. ERGOCALCIFEROL [Concomitant]
     Dates: start: 20101015, end: 20101016
  2. ALGESAL [Concomitant]
     Dates: start: 20101223
  3. FERROUS GLUCONATE [Concomitant]
     Dates: start: 20100917, end: 20101001
  4. DIAZEPAM [Concomitant]
     Dates: start: 20101222, end: 20101229
  5. DICLOFENAC SODIUM [Concomitant]
     Dates: start: 20101220
  6. CLINDAMYCIN [Concomitant]
     Dates: start: 20100908, end: 20101112
  7. ZOPICLONE [Concomitant]
     Dates: start: 20101229
  8. OXYTETRACYCLINE [Concomitant]
     Dates: start: 20100811, end: 20101006
  9. TRAMADOL HCL [Concomitant]
     Dates: start: 20100917
  10. ACETAMINOPHEN AND CODEINE PHOSPHATE [Suspect]
     Dates: start: 20101229

REACTIONS (1)
  - CIRCULATORY COLLAPSE [None]
